FAERS Safety Report 4716068-9 (Version None)
Quarter: 2005Q3

REPORT INFORMATION
  Report Type: 
  Country: None (occurrence: None)
  Receive Date: 20050718
  Receipt Date: 20050712
  Transmission Date: 20060218
  Serious: Yes (Hospitalization)
  Sender: FDA-Public Use
  Company Number: US-JNJFOC-20050702453

PATIENT
  Sex: Male
  Weight: 86.18 kg

DRUGS (5)
  1. LEVAQUIN [Suspect]
     Indication: INFECTED SKIN ULCER
     Route: 048
     Dates: start: 20050707, end: 20050709
  2. INSULIN [Concomitant]
  3. LIPITOR [Concomitant]
  4. HIGH BLOOD PRESSURE MED [Concomitant]
  5. CARDIAC MEDICATION [Concomitant]

REACTIONS (1)
  - HICCUPS [None]
